FAERS Safety Report 7216217-7 (Version None)
Quarter: 2011Q1

REPORT INFORMATION
  Report Type: 
  Country: None (occurrence: None)
  Receive Date: 20110107
  Receipt Date: 20110103
  Transmission Date: 20110831
  Serious: Yes (Hospitalization)
  Sender: FDA-Public Use
  Company Number: US-ABBOTT-11P-163-0695135-00

PATIENT
  Age: 60 Year
  Sex: Female

DRUGS (8)
  1. PREDNISONE [Concomitant]
     Indication: CROHN'S DISEASE
     Dosage: TAPERING
  2. HUMIRA [Suspect]
     Dates: start: 20101231
  3. VICODIN [Concomitant]
     Indication: BONE PAIN
     Dosage: 5/500MG, 2-6 TABS DAILY
  4. NICOTINE [Concomitant]
     Indication: EX-TOBACCO USER
  5. HUMIRA [Suspect]
     Indication: CROHN'S DISEASE
     Dosage: ONLY TOOK THE LOADING DOSE
     Dates: start: 20101210, end: 20101224
  6. IMODIUM [Concomitant]
     Indication: DIARRHOEA
  7. WELLBUTRIN [Concomitant]
     Indication: EX-TOBACCO USER
  8. XANAX [Concomitant]
     Indication: NERVOUSNESS

REACTIONS (3)
  - BRONCHITIS [None]
  - WHEEZING [None]
  - WHITE BLOOD CELL COUNT INCREASED [None]
